FAERS Safety Report 8428080-7 (Version None)
Quarter: 2012Q2

REPORT INFORMATION
  Report Type: 
  Country: None (occurrence: None)
  Receive Date: 20120611
  Receipt Date: 20120216
  Transmission Date: 20120825
  Serious: No
  Sender: FDA-Public Use
  Company Number: US-ASTRAZENECA-2012SE10820

PATIENT
  Sex: Female

DRUGS (2)
  1. RHINOCORT [Suspect]
     Indication: RHINORRHOEA
     Dosage: BID
     Route: 045
     Dates: start: 20120216
  2. RHINOCORT [Suspect]
     Indication: COUGH
     Dosage: BID
     Route: 045
     Dates: start: 20120216

REACTIONS (2)
  - SALIVARY HYPERSECRETION [None]
  - NASAL CONGESTION [None]
